FAERS Safety Report 19816660 (Version 1)
Quarter: 2021Q3

REPORT INFORMATION
  Report Type: Spontaneous
  Country: US (occurrence: US)
  Receive Date: 20210909
  Receipt Date: 20210909
  Transmission Date: 20211014
  Serious: Yes (Hospitalization, Other)
  Sender: FDA-Public Use
  Company Number: US-BLUEPRINT MEDICINES CORPORATION-SP-US-2021-001429

PATIENT
  Age: 65 Year
  Sex: Female

DRUGS (2)
  1. AYVAKIT [Suspect]
     Active Substance: AVAPRITINIB
     Indication: GASTROINTESTINAL STROMAL TUMOUR
     Route: 048
     Dates: start: 20210716, end: 20210829
  2. AYVAKIT [Suspect]
     Active Substance: AVAPRITINIB
     Route: 048
     Dates: start: 20210716

REACTIONS (17)
  - Abdominal distension [Unknown]
  - Decreased appetite [Recovered/Resolved]
  - Somnolence [Unknown]
  - Generalised oedema [Recovered/Resolved]
  - Chest discomfort [Recovered/Resolved]
  - Dyspnoea [Recovered/Resolved]
  - Abdominal discomfort [Unknown]
  - Ageusia [Unknown]
  - Hypoaesthesia [Unknown]
  - Skin texture abnormal [Recovered/Resolved]
  - Fatigue [Unknown]
  - Vomiting [Unknown]
  - Drug ineffective [Unknown]
  - Taste disorder [Unknown]
  - Neoplasm progression [Recovered/Resolved]
  - Asthenia [Unknown]
  - Weight decreased [Unknown]

NARRATIVE: CASE EVENT DATE: 20210829
